FAERS Safety Report 13802269 (Version 1)
Quarter: 2017Q3

REPORT INFORMATION
  Report Type: Spontaneous
  Country: US (occurrence: US)
  Receive Date: 20170727
  Receipt Date: 20170727
  Transmission Date: 20171127
  Serious: No
  Sender: FDA-Public Use
  Company Number: US-ACTELION-A-US2017-157289

PATIENT
  Age: 72 Year
  Sex: Female

DRUGS (14)
  1. BENZONATATE. [Concomitant]
     Active Substance: BENZONATATE
  2. LEVAQUIN [Concomitant]
     Active Substance: LEVOFLOXACIN
  3. OPSUMIT [Suspect]
     Active Substance: MACITENTAN
     Indication: PULMONARY ARTERIAL HYPERTENSION
     Dosage: 10 MG, UNK
     Route: 048
     Dates: start: 20161122
  4. CEPHALEXIN. [Concomitant]
     Active Substance: CEPHALEXIN
  5. CLARITHROMYCIN. [Concomitant]
     Active Substance: CLARITHROMYCIN
  6. BUDESONIDE. [Concomitant]
     Active Substance: BUDESONIDE
  7. ACTONEL [Concomitant]
     Active Substance: RISEDRONATE SODIUM
  8. ASPIRIN. [Concomitant]
     Active Substance: ASPIRIN
  9. FERROUS SULFATE. [Concomitant]
     Active Substance: FERROUS SULFATE
  10. CEFUROXIME AXETIL. [Concomitant]
     Active Substance: CEFUROXIME AXETIL
  11. PREDNISONE. [Concomitant]
     Active Substance: PREDNISONE
  12. BUMETANIDE. [Concomitant]
     Active Substance: BUMETANIDE
  13. TORSEMIDE. [Concomitant]
     Active Substance: TORSEMIDE
  14. ECONAZOLE NITRATE. [Concomitant]
     Active Substance: ECONAZOLE NITRATE

REACTIONS (1)
  - Blood uric acid increased [Unknown]
